FAERS Safety Report 5225211-7 (Version None)
Quarter: 2007Q1

REPORT INFORMATION
  Report Type: 
  Country: None (occurrence: None)
  Receive Date: 20070131
  Receipt Date: 20070116
  Transmission Date: 20070707
  Serious: Yes (Life-Threatening, Other)
  Sender: FDA-Public Use
  Company Number: KR-JNJFOC-20070103655

PATIENT
  Sex: Female
  Weight: 55 kg

DRUGS (4)
  1. SPORANOX [Suspect]
     Dosage: ITRACONAZOLE USE
     Route: 042
  2. SPORANOX [Suspect]
     Indication: PROPHYLAXIS
     Dosage: ITRACONAZOLE USE
     Route: 042
  3. PLACEBO [Suspect]
     Route: 042
  4. PLACEBO [Suspect]
     Indication: PROPHYLAXIS
     Route: 042

REACTIONS (2)
  - PSEUDOMEMBRANOUS COLITIS [None]
  - RENAL FAILURE ACUTE [None]
